FAERS Safety Report 23993291 (Version 1)
Quarter: 2024Q2

REPORT INFORMATION
  Report Type: Spontaneous
  Country: FR (occurrence: FR)
  Receive Date: 20240620
  Receipt Date: 20240620
  Transmission Date: 20240717
  Serious: Yes (Other)
  Sender: FDA-Public Use
  Company Number: None

PATIENT
  Age: 89 Year
  Sex: Male

DRUGS (21)
  1. DAPTOMYCIN [Suspect]
     Active Substance: DAPTOMYCIN
     Indication: Osteitis
     Dosage: DAPTOMYCIN ACCORD
     Dates: start: 20240514, end: 20240528
  2. PIPERACILLIN SODIUM\TAZOBACTAM SODIUM [Suspect]
     Active Substance: PIPERACILLIN SODIUM\TAZOBACTAM SODIUM
     Indication: Osteitis
     Dosage: PIPERACILLIN TAZOBACTAM PANPHARMA 4 G/500 MG, POWDER FOR SOLUTION FOR?INFUSION
     Dates: start: 20240514, end: 20240528
  3. ATORVASTATIN [Concomitant]
     Active Substance: ATORVASTATIN
  4. CLOPIDOGREL [Concomitant]
     Active Substance: CLOPIDOGREL BISULFATE
  5. PAROXETINE [Concomitant]
     Active Substance: PAROXETINE
  6. DAPAGLIFLOZIN [Concomitant]
     Active Substance: DAPAGLIFLOZIN
  7. SACUBITRIL\VALSARTAN [Concomitant]
     Active Substance: SACUBITRIL\VALSARTAN
  8. ACETAMINOPHEN [Concomitant]
     Active Substance: ACETAMINOPHEN
  9. INSULIN GLARGINE [Concomitant]
     Active Substance: INSULIN GLARGINE
  10. BISOPROLOL [Concomitant]
     Active Substance: BISOPROLOL\BISOPROLOL FUMARATE
  11. MIDAZOLAM [Concomitant]
     Active Substance: MIDAZOLAM
  12. HUMALOG [Concomitant]
     Active Substance: INSULIN LISPRO
  13. NEFOPAM [Concomitant]
     Active Substance: NEFOPAM
  14. BIFONAZOLE [Concomitant]
     Active Substance: BIFONAZOLE
  15. LIDOCAINE [Concomitant]
     Active Substance: LIDOCAINE
  16. FUROSEMIDE [Concomitant]
     Active Substance: FUROSEMIDE
  17. PANTOPRAZOLE [Concomitant]
     Active Substance: PANTOPRAZOLE
  18. FENTANYL [Concomitant]
     Active Substance: FENTANYL\FENTANYL CITRATE
  19. POLYETHYLENE GLYCOLS [Concomitant]
     Active Substance: POLYETHYLENE GLYCOLS
     Dosage: MACROGOL (CETYL/OLEYL ETHERS)
  20. AMIODARONE [Concomitant]
     Active Substance: AMIODARONE
  21. LEVOTHYROXINE [Concomitant]
     Active Substance: LEVOTHYROXINE\LEVOTHYROXINE SODIUM

REACTIONS (1)
  - Skin necrosis [Recovering/Resolving]

NARRATIVE: CASE EVENT DATE: 20240527
